FAERS Safety Report 8974192 (Version 1)
Quarter: 2012Q4

REPORT INFORMATION
  Report Type: Spontaneous
  Country: LV (occurrence: None)
  Receive Date: 20121212
  Receipt Date: 20121212
  Transmission Date: 20130627
  Serious: Yes (Hospitalization)
  Sender: FDA-Public Use
  Company Number: VAL_01027_2012

PATIENT
  Age: 70 Year
  Sex: Female
  Weight: 68 kg

DRUGS (5)
  1. METOPROLOL [Suspect]
     Indication: CARDIAC FAILURE
     Route: 048
     Dates: start: 200711, end: 20121120
  2. LCZ696 [Suspect]
     Indication: CARDIAC FAILURE CHRONIC
     Dosage: (DF)
     Dates: start: 20110316
  3. ASPIRIN [Concomitant]
  4. ATORVASTATIN [Concomitant]
  5. VEROSPIRON [Concomitant]

REACTIONS (1)
  - Hospitalisation [None]
